FAERS Safety Report 25389256 (Version 1)
Quarter: 2025Q2

REPORT INFORMATION
  Report Type: Spontaneous
  Country: KW (occurrence: KW)
  Receive Date: 20250603
  Receipt Date: 20250603
  Transmission Date: 20250717
  Serious: Yes (Other)
  Sender: NOVARTIS
  Company Number: KW-002147023-NVSC2025KW087632

PATIENT
  Age: 27 Year
  Sex: Male

DRUGS (1)
  1. TASIGNA [Suspect]
     Active Substance: NILOTINIB
     Indication: Product used for unknown indication
     Route: 065

REACTIONS (14)
  - Toxoplasmosis [Unknown]
  - Systemic scleroderma [Unknown]
  - Ligament sprain [Unknown]
  - Atelectasis [Unknown]
  - Pleural effusion [Unknown]
  - Arthralgia [Unknown]
  - Mobility decreased [Unknown]
  - Hypokinesia [Unknown]
  - Pain [Unknown]
  - Rash macular [Unknown]
  - Fatigue [Unknown]
  - Decreased appetite [Unknown]
  - Muscle spasms [Unknown]
  - Joint stiffness [Unknown]

NARRATIVE: CASE EVENT DATE: 20240609
